FAERS Safety Report 9112441 (Version 1)
Quarter: 2013Q1

REPORT INFORMATION
  Report Type: Report from Study
  Country: GR (occurrence: GR)
  Receive Date: 20130211
  Receipt Date: 20130211
  Transmission Date: 20140127
  Serious: Yes (Life-Threatening, Hospitalization)
  Sender: FDA-Public Use
  Company Number: GR-US-EMD SERONO, INC.-7192830

PATIENT
  Age: 65 Year
  Sex: Female

DRUGS (9)
  1. CRESTOR [Concomitant]
     Indication: HYPERCHOLESTEROLAEMIA
  2. MANYPER [Concomitant]
     Indication: HYPERTENSION
     Route: 048
  3. MANYPER [Concomitant]
     Indication: HYPERCHOLESTEROLAEMIA
  4. LAPRAZOL [Concomitant]
     Indication: HYPERTENSION
     Route: 048
  5. LAPRAZOL [Concomitant]
     Indication: HYPERCHOLESTEROLAEMIA
  6. COZAAR [Concomitant]
     Indication: PRODUCT USED FOR UNKNOWN INDICATION
     Dates: start: 2012
  7. LIPITOR [Concomitant]
     Indication: PRODUCT USED FOR UNKNOWN INDICATION
     Dates: start: 2012
  8. REBIF [Suspect]
     Indication: MULTIPLE SCLEROSIS
     Route: 058
     Dates: start: 200110
  9. CRESTOR [Concomitant]
     Indication: HYPERTENSION
     Route: 048

REACTIONS (1)
  - Duodenal ulcer [Recovered/Resolved]
